FAERS Safety Report 4482987-4 (Version None)
Quarter: 2004Q4

REPORT INFORMATION
  Report Type: 
  Country: None (occurrence: None)
  Receive Date: 20041022
  Receipt Date: 20041019
  Transmission Date: 20050328
  Serious: Yes (Life-Threatening, Hospitalization)
  Sender: FDA-Public Use
  Company Number: US-MERCK-0410USA02697

PATIENT
  Age: 71 Year
  Sex: Male

DRUGS (2)
  1. VIOXX [Suspect]
     Indication: ARTHRITIS
     Route: 048
     Dates: start: 20040101, end: 20040101
  2. ZESTRIL [Concomitant]
     Route: 065

REACTIONS (2)
  - CORONARY ARTERY OCCLUSION [None]
  - GASTRIC DISORDER [None]
